FAERS Safety Report 6282327-4 (Version None)
Quarter: 2009Q3

REPORT INFORMATION
  Report Type: 
  Country: None (occurrence: None)
  Receive Date: 20090722
  Receipt Date: 20090717
  Transmission Date: 20100115
  Serious: Yes (Other)
  Sender: FDA-Public Use
  Company Number: A0797451A

PATIENT
  Age: 61 Year
  Sex: Female

DRUGS (2)
  1. CAFFEINE CAPLET (CAFFEINE) [Suspect]
     Dosage: ORAL
     Route: 048
  2. CAFFEINE TABLET (CAFFEINE) [Suspect]
     Dosage: ORAL
     Route: 048

REACTIONS (2)
  - DEPENDENCE [None]
  - DRUG ADMINISTRATION ERROR [None]
